FAERS Safety Report 9377599 (Version 1)
Quarter: 2013Q2

REPORT INFORMATION
  Report Type: Spontaneous
  Country: GB (occurrence: None)
  Receive Date: 20130625
  Receipt Date: 20130625
  Transmission Date: 20140414
  Serious: Yes (Other)
  Sender: FDA-Public Use
  Company Number: 2013GMK005929

PATIENT
  Age: 71 Year
  Sex: Male
  Weight: 96 kg

DRUGS (11)
  1. PRAMIPEXOLE [Suspect]
     Indication: PARKINSON^S DISEASE
     Route: 048
     Dates: start: 20080814
  2. AMANTADINE (AMANTADINE) [Concomitant]
  3. CLONAZEPAM (CLONAZEPAM) (CLONAZEPAM) [Concomitant]
  4. DICLOFENAC (DICLOFENAC) [Concomitant]
  5. DOMPERIDONE (DOMEPRIDONE) [Concomitant]
  6. PARACETAMOL (PARCETAMOL) [Concomitant]
  7. REGURIN (TROSPIUM CHLORIDE) [Concomitant]
  8. SELEGILINE (SELEGILINE) [Concomitant]
  9. STALEVO (CARBIDOPA ENTACAPONE, LEVODOPA) [Concomitant]
  10. TOLTERODINE (TOLTERODINE) [Concomitant]
  11. WARFARIN (WARFARIN) [Concomitant]

REACTIONS (5)
  - Thinking abnormal [None]
  - Emotional distress [None]
  - Impulse-control disorder [None]
  - Irritability [None]
  - Parkinson^s disease [None]
